FAERS Safety Report 4276597-1 (Version None)
Quarter: 2004Q1

REPORT INFORMATION
  Report Type: 
  Country: None (occurrence: None)
  Receive Date: 20040120
  Receipt Date: 20040105
  Transmission Date: 20041129
  Serious: Yes (Hospitalization, Other)
  Sender: FDA-Public Use
  Company Number: A0491421A

PATIENT
  Age: 54 Year
  Sex: Male

DRUGS (6)
  1. NICORETTE [Suspect]
     Indication: TOBACCO ABUSE
     Dosage: 2 MG/TRANSBUCCAL
     Dates: start: 20000101, end: 20040102
  2. NICODERM CQ [Concomitant]
     Indication: TOBACCO ABUSE
     Dosage: 21 MG / TRANSDERMAL
     Route: 062
     Dates: end: 20031201
  3. SIMVASTATIN [Concomitant]
  4. METFORMIN HCL [Concomitant]
  5. LISINOPRIL [Concomitant]
  6. CAFFEINE [Concomitant]

REACTIONS (6)
  - APPLICATION SITE IRRITATION [None]
  - DEHYDRATION [None]
  - DIARRHOEA [None]
  - ELECTROCARDIOGRAM ST SEGMENT ABNORMAL [None]
  - SYNCOPE [None]
  - TACHYCARDIA [None]
